FAERS Safety Report 20508685 (Version 7)
Quarter: 2022Q3

REPORT INFORMATION
  Report Type: Spontaneous
  Country: JP (occurrence: JP)
  Receive Date: 20220223
  Receipt Date: 20220823
  Transmission Date: 20221027
  Serious: Yes (Other)
  Sender: FDA-Public Use
  Company Number: JP-MSD-M2022-04500

PATIENT
  Age: 83 Year
  Sex: Female

DRUGS (8)
  1. KEYTRUDA [Suspect]
     Active Substance: PEMBROLIZUMAB
     Indication: Uterine cancer
     Dosage: 200 MILLIGRAM, Q3W
     Route: 041
     Dates: start: 20220119, end: 20220119
  2. KEYTRUDA [Suspect]
     Active Substance: PEMBROLIZUMAB
     Dosage: UNK MILLIGRAM
     Route: 041
     Dates: start: 20220401
  3. LENVIMA [Suspect]
     Active Substance: LENVATINIB
     Indication: Uterine cancer
     Dosage: 20 MILLIGRAM, QD
     Route: 048
     Dates: start: 20220119, end: 202201
  4. LENVIMA [Suspect]
     Active Substance: LENVATINIB
     Dosage: 10 MILLIGRAM, QD
     Route: 048
     Dates: start: 202201, end: 202202
  5. LENVIMA [Suspect]
     Active Substance: LENVATINIB
     Dosage: 4 MILLIGRAM, QD
     Route: 048
     Dates: start: 2022
  6. ELIQUIS [Concomitant]
     Active Substance: APIXABAN
     Dosage: UNK
     Route: 048
  7. ADALAT [Concomitant]
     Active Substance: NIFEDIPINE
     Dosage: UNK
     Route: 048
  8. AZOSEMIDE [Concomitant]
     Active Substance: AZOSEMIDE
     Dosage: UNK
     Route: 048

REACTIONS (12)
  - Polymyalgia rheumatica [Recovered/Resolved]
  - Renal impairment [Recovered/Resolved]
  - Guillain-Barre syndrome [Unknown]
  - Limb discomfort [Recovered/Resolved]
  - Motor dysfunction [Unknown]
  - Decreased appetite [Recovered/Resolved]
  - Weight decreased [Recovered/Resolved]
  - Dehydration [Recovered/Resolved]
  - Muscle spasms [Recovered/Resolved]
  - Malaise [Unknown]
  - Hypoaesthesia [Unknown]
  - Hypertension [Recovered/Resolved]

NARRATIVE: CASE EVENT DATE: 20220101
